FAERS Safety Report 9143874 (Version 1)
Quarter: 2013Q1

REPORT INFORMATION
  Report Type: Spontaneous
  Country: IT (occurrence: IT)
  Receive Date: 20130306
  Receipt Date: 20130306
  Transmission Date: 20140127
  Serious: Yes (Hospitalization)
  Sender: FDA-Public Use
  Company Number: PHHY2013IT020914

PATIENT
  Age: 37 Year
  Sex: Female

DRUGS (7)
  1. DOXORUBICIN [Suspect]
     Indication: ADRENOCORTICAL CARCINOMA
     Dosage: UNK
     Route: 042
     Dates: start: 20121214, end: 20121227
  2. ETOPOSIDE [Suspect]
     Indication: ADRENOCORTICAL CARCINOMA
     Route: 042
     Dates: start: 20121214, end: 20121227
  3. CISPLATIN [Suspect]
     Indication: ADRENOCORTICAL CARCINOMA
     Route: 042
     Dates: start: 20121214, end: 20121227
  4. EUTIROX [Concomitant]
     Route: 048
  5. CORTONE ACETATO [Concomitant]
     Route: 048
  6. SELEPARINA [Concomitant]
  7. MITOTANE [Concomitant]

REACTIONS (1)
  - Pulmonary embolism [Recovered/Resolved]
